FAERS Safety Report 8839136 (Version 1)
Quarter: 2012Q4

REPORT INFORMATION
  Report Type: 
  Country: US (occurrence: US)
  Receive Date: 20121015
  Receipt Date: 20121015
  Transmission Date: 20130627
  Serious: No
  Sender: FDA-Public Use
  Company Number: US-BIOGENIDEC-2012BI043115

PATIENT
  Age: 68 Year
  Sex: Female

DRUGS (2)
  1. AVONEX [Suspect]
     Indication: MULTIPLE SCLEROSIS
     Route: 030
     Dates: start: 20020630
  2. THYROID MEDICATION [Concomitant]

REACTIONS (3)
  - Osteoporosis [Not Recovered/Not Resolved]
  - Tremor [Recovered/Resolved]
  - Thyroid disorder [Not Recovered/Not Resolved]
